FAERS Safety Report 11065770 (Version 1)
Quarter: 2015Q2

REPORT INFORMATION
  Report Type: Spontaneous
  Country: US (occurrence: None)
  Receive Date: 20150423
  Receipt Date: 20150423
  Transmission Date: 20150821
  Serious: Yes (Life-Threatening, Hospitalization)
  Sender: FDA-Public Use
  Company Number: US-DEXPHARM-20141327

PATIENT
  Age: 65 Year
  Sex: Male

DRUGS (7)
  1. PRAVASTATIN [Concomitant]
     Active Substance: PRAVASTATIN\PRAVASTATIN SODIUM
  2. OMEPRAZOLE. [Suspect]
     Active Substance: OMEPRAZOLE
     Indication: GASTROOESOPHAGEAL REFLUX DISEASE
     Route: 048
  3. ASPIRIN. [Concomitant]
     Active Substance: ASPIRIN
  4. AMLODIPINE [Concomitant]
     Active Substance: AMLODIPINE BESYLATE
  5. VITAMIN D [Concomitant]
     Active Substance: CHOLECALCIFEROL
  6. LISINOPRIL. [Concomitant]
     Active Substance: LISINOPRIL
  7. METFORMIN [Suspect]
     Active Substance: METFORMIN HYDROCHLORIDE
     Indication: DIABETES MELLITUS

REACTIONS (23)
  - Blood potassium decreased [None]
  - Agitation [None]
  - Hypopnoea [None]
  - Nausea [None]
  - Disorientation [None]
  - Sinus tachycardia [None]
  - Blood glucose increased [None]
  - Respiratory rate increased [None]
  - Rhabdomyolysis [None]
  - Blood calcium decreased [None]
  - Acute prerenal failure [None]
  - Hypomagnesaemia [None]
  - Abdominal pain [None]
  - Refusal of treatment by patient [None]
  - Pneumonia aspiration [None]
  - Diarrhoea [None]
  - Electrocardiogram QT prolonged [None]
  - Lactic acidosis [None]
  - Bundle branch block right [None]
  - Seizure [None]
  - Aggression [None]
  - Hyperreflexia [None]
  - Blood phosphorus decreased [None]
